FAERS Safety Report 6931184-9 (Version None)
Quarter: 2010Q3

REPORT INFORMATION
  Report Type: 
  Country: None (occurrence: None)
  Receive Date: 20100818
  Receipt Date: 20100816
  Transmission Date: 20110219
  Serious: Yes (Hospitalization)
  Sender: FDA-Public Use
  Company Number: IE-MERCK-1004GBR00109

PATIENT
  Age: 3 Year
  Sex: Female

DRUGS (5)
  1. CASPOFUNGIN ACETATE [Suspect]
     Indication: CANDIDIASIS
     Route: 042
     Dates: start: 20090121
  2. DEXAMETHASONE [Concomitant]
     Indication: B PRECURSOR TYPE ACUTE LEUKAEMIA
     Route: 048
  3. VINCRISTINE SULFATE [Concomitant]
     Indication: B PRECURSOR TYPE ACUTE LEUKAEMIA
     Route: 065
  4. PEGASPARGASE [Concomitant]
     Indication: B PRECURSOR TYPE ACUTE LEUKAEMIA
     Route: 065
  5. METHOTREXATE SODIUM [Concomitant]
     Indication: B PRECURSOR TYPE ACUTE LEUKAEMIA
     Route: 065

REACTIONS (2)
  - DUODENAL ULCER [None]
  - GASTRIC ULCER [None]
